FAERS Safety Report 20929156 (Version 1)
Quarter: 2022Q2

REPORT INFORMATION
  Report Type: Spontaneous
  Country: US (occurrence: US)
  Receive Date: 20220608
  Receipt Date: 20220608
  Transmission Date: 20220720
  Serious: Yes (Death, Hospitalization, Other)
  Sender: FDA-Public Use
  Company Number: US-SUN PHARMACEUTICAL INDUSTRIES LTD-2022R1-339502

PATIENT
  Age: 70 Year
  Sex: Male

DRUGS (2)
  1. AMPHOTERICIN B [Suspect]
     Active Substance: AMPHOTERICIN B
     Indication: Onychomycosis
     Dosage: 5 MILLIGRAM/KILOGRAM, DAILY
     Route: 042
  2. VORICONAZOLE [Suspect]
     Active Substance: VORICONAZOLE
     Indication: Onychomycosis
     Dosage: 4 MILLIGRAM/KILOGRAM, BID
     Route: 042

REACTIONS (2)
  - Disease progression [Fatal]
  - Drug ineffective [Fatal]
